FAERS Safety Report 11349946 (Version 1)
Quarter: 2015Q3

REPORT INFORMATION
  Report Type: Spontaneous
  Country: FR (occurrence: FR)
  Receive Date: 20150807
  Receipt Date: 20150807
  Transmission Date: 20151125
  Serious: Yes (Hospitalization)
  Sender: FDA-Public Use
  Company Number: FR-009507513-1508FRA000235

PATIENT
  Age: 58 Year
  Sex: Male

DRUGS (9)
  1. HYDREA [Suspect]
     Active Substance: HYDROXYUREA
     Indication: ACUTE MYELOID LEUKAEMIA
     Dosage: DAILY DOSE: 2 G AT D1-D2-D3
     Route: 048
     Dates: start: 20150423, end: 20150425
  2. FUROSEMIDE. [Suspect]
     Active Substance: FUROSEMIDE
     Dosage: 20 MG, UNK
     Route: 042
     Dates: start: 20150423
  3. ZYLORIC [Suspect]
     Active Substance: ALLOPURINOL
     Dosage: 300 MG, QD
     Route: 048
     Dates: start: 20150423, end: 20150517
  4. HYDREA [Suspect]
     Active Substance: HYDROXYUREA
     Dosage: DAILY DOSE: 1 G AT D4-D5
     Route: 048
     Dates: start: 20150426, end: 20150427
  5. MYCOSTATINE [Suspect]
     Active Substance: NYSTATIN
     Dosage: UNK, 21 INTERMITTENT DAYS, STRENGTH: 100 000IU/ML
     Route: 048
     Dates: start: 20150423, end: 20150530
  6. CELESTENE [Suspect]
     Active Substance: BETAMETHASONE
     Dosage: UNK
     Route: 048
     Dates: start: 201504, end: 201504
  7. AUGMENTIN [Suspect]
     Active Substance: AMOXICILLIN\CLAVULANATE POTASSIUM
     Indication: UPPER RESPIRATORY TRACT INFLAMMATION
     Dosage: UNK
     Route: 048
     Dates: start: 201504, end: 201504
  8. LEXOMIL [Suspect]
     Active Substance: BROMAZEPAM
     Dosage: 0.5 TABLET( INTAKE ON 2 DAYS, 30 DAYS FREE-INTERVAL)
     Route: 048
     Dates: start: 20150423, end: 20150524
  9. HYDREA [Suspect]
     Active Substance: HYDROXYUREA
     Dosage: DAILY DOSE:500 MG AT D6
     Route: 048
     Dates: start: 20150428, end: 20150428

REACTIONS (1)
  - Neutropenia [Not Recovered/Not Resolved]

NARRATIVE: CASE EVENT DATE: 20150427
